FAERS Safety Report 17974081 (Version 1)
Quarter: 2020Q3

REPORT INFORMATION
  Report Type: Report from Study
  Country: US (occurrence: US)
  Receive Date: 20200702
  Receipt Date: 20200702
  Transmission Date: 20201103
  Serious: Yes (Hospitalization, Other)
  Sender: FDA-Public Use
  Company Number: US-MYLANLABS-2020M1060685

PATIENT
  Sex: Female

DRUGS (9)
  1. CYTARABINE. [Suspect]
     Active Substance: CYTARABINE
     Indication: HODGKIN^S DISEASE NODULAR SCLEROSIS STAGE III
     Dosage: TEN DAYS AFTER THE LAST 90 Y?DACLIZUMAB TREATMENT, THE PATIENT BEGAN 4?D MYELOABLATIVE REGIME..
     Route: 065
     Dates: start: 2014
  2. DACLIZUMAB [Suspect]
     Active Substance: DACLIZUMAB
     Indication: HODGKIN^S DISEASE NODULAR SCLEROSIS STAGE III
     Dosage: THE SC INFUSION THERAPEUTIC 90 Y?DACLIZUMAB WAS ADMINISTERED WITH UNCONJUGATED...
     Route: 058
     Dates: start: 2014, end: 2014
  3. DACLIZUMAB [Suspect]
     Active Substance: DACLIZUMAB
     Dosage: THE SC INFUSION THERAPEUTIC 90 Y?DACLIZUMAB...
     Route: 058
     Dates: start: 2014, end: 2014
  4. CARMUSTINE. [Suspect]
     Active Substance: CARMUSTINE
     Indication: HODGKIN^S DISEASE NODULAR SCLEROSIS STAGE III
     Dosage: TEN DAYS AFTER THE LAST 90 Y?DACLIZUMAB TREATMENT, THE PATIENT BEGAN 4?D MYELOABLATIVE...
     Route: 065
     Dates: start: 2014
  5. ETOPOSIDE. [Suspect]
     Active Substance: ETOPOSIDE
     Indication: HODGKIN^S DISEASE NODULAR SCLEROSIS STAGE III
     Dosage: TEN DAYS AFTER THE LAST 90 Y?DACLIZUMAB TREATMENT, THE PATIENT BEGAN 4?D MYELOABLATIVE REGIME..
     Route: 065
     Dates: start: 2014
  6. DIETHYLENETRIAMINE PENTA?ACETIC ACID [Concomitant]
     Active Substance: PENTETIC ACID
     Indication: CHELATION THERAPY
     Dosage: 250 MILLIGRAM/SQ. METER
     Dates: start: 2014
  7. CALCIUM TRISODIUM PENTETATE [Concomitant]
     Indication: CHELATION THERAPY
     Dosage: RECEIVED REPEAT INFUSIONS AFTER THEIR DACLIZUMAB?Y?90
  8. MELPHALAN. [Suspect]
     Active Substance: MELPHALAN
     Indication: HODGKIN^S DISEASE NODULAR SCLEROSIS STAGE III
     Dosage: TEN DAYS AFTER THE LAST 90 Y?DACLIZUMAB TREATMENT, THE PATIENT BEGAN 4?D MYELOABLATIVE REGIME..
     Route: 065
     Dates: start: 2014
  9. PALIFERMIN [Concomitant]
     Active Substance: PALIFERMIN
     Indication: PROPHYLAXIS
     Dosage: TREATMENT WITH KERATINOCYTE GROWTH FACTOR WAS INITIATED 3 D BEFORE THE START OF BEAM CHEMOTHERAPY
     Route: 065

REACTIONS (4)
  - Premature menopause [Recovered/Resolved]
  - Neutropenia [Recovered/Resolved]
  - Streptococcal bacteraemia [Recovered/Resolved]
  - Device related bacteraemia [Recovered/Resolved]

NARRATIVE: CASE EVENT DATE: 2014
